FAERS Safety Report 4718827-5 (Version None)
Quarter: 2005Q3

REPORT INFORMATION
  Report Type: 
  Country: None (occurrence: None)
  Receive Date: 20050719
  Receipt Date: 20050714
  Transmission Date: 20060218
  Serious: Yes (Hospitalization)
  Sender: FDA-Public Use
  Company Number: USA040464215

PATIENT
  Age: 5 Year
  Sex: Female
  Weight: 27 kg

DRUGS (12)
  1. ZYPREXA [Suspect]
     Indication: BIPOLAR DISORDER
     Dosage: 10 MG
     Dates: start: 20031001
  2. CONCERTA [Concomitant]
  3. CLONIDINE [Concomitant]
  4. RITALIN LA [Concomitant]
  5. TENEX [Concomitant]
  6. DEPAKOTE [Concomitant]
  7. GEODON [Concomitant]
  8. ADDERALL 30 [Concomitant]
  9. FOCALIN [Concomitant]
  10. TRAZADONE (TRAZODONE) [Concomitant]
  11. FLUOXETINE [Concomitant]
  12. DEPAKOTE [Concomitant]

REACTIONS (28)
  - ABNORMAL BEHAVIOUR [None]
  - AGGRESSION [None]
  - BACTERIA URINE [None]
  - BIPOLAR DISORDER [None]
  - BLISTER [None]
  - BLOOD GLUCOSE INCREASED [None]
  - CONDITION AGGRAVATED [None]
  - DYSKINESIA [None]
  - EPISTAXIS [None]
  - FEELING HOT [None]
  - FOOD CRAVING [None]
  - HALLUCINATION [None]
  - HALLUCINATION, AUDITORY [None]
  - IMPULSIVE BEHAVIOUR [None]
  - IRRITABILITY [None]
  - MANIA [None]
  - NERVOUSNESS [None]
  - PHARMACEUTICAL PRODUCT COMPLAINT [None]
  - POLYDIPSIA [None]
  - POLYURIA [None]
  - POST-TRAUMATIC STRESS DISORDER [None]
  - PSYCHOMOTOR HYPERACTIVITY [None]
  - PSYCHOTIC DISORDER [None]
  - SLEEP DISORDER [None]
  - TIC [None]
  - TOURETTE'S DISORDER [None]
  - VOMITING [None]
  - WEIGHT INCREASED [None]
